FAERS Safety Report 7650797-2 (Version None)
Quarter: 2011Q3

REPORT INFORMATION
  Report Type: 
  Country: None (occurrence: None)
  Receive Date: 20110727
  Receipt Date: 20110714
  Transmission Date: 20111222
  Serious: Yes (Other)
  Sender: FDA-Public Use
  Company Number: 2011SP033110

PATIENT
  Age: 51 Year
  Sex: Female

DRUGS (6)
  1. DEXAMETHASONE [Suspect]
     Dosage: ;OPH
     Route: 047
  2. BETAMETHASONE [Suspect]
     Dosage: ;QPM; OPH
     Route: 047
  3. RITONAVIR [Suspect]
     Dosage: 100 MG; QD;
  4. EMTRICITABINE [Concomitant]
  5. TENOFOVIR DISOPROXIL FUMARATE [Concomitant]
  6. ATAZANAVIR [Concomitant]

REACTIONS (6)
  - BODY FAT DISORDER [None]
  - OSTEONECROSIS [None]
  - WEIGHT INCREASED [None]
  - ADRENAL INSUFFICIENCY [None]
  - POTENTIATING DRUG INTERACTION [None]
  - BLOOD CORTICOTROPHIN DECREASED [None]
